FAERS Safety Report 23102154 (Version 1)
Quarter: 2023Q4

REPORT INFORMATION
  Report Type: Spontaneous
  Country: US (occurrence: US)
  Receive Date: 20231025
  Receipt Date: 20231025
  Transmission Date: 20240109
  Serious: Yes (Other)
  Sender: FDA-Public Use
  Company Number: US-PCCINC-2023-PPL-000485

PATIENT

DRUGS (5)
  1. BACLOFEN [Suspect]
     Active Substance: BACLOFEN
     Indication: Muscle spasticity
     Dosage: UNK
  2. GABAPENTIN [Concomitant]
     Active Substance: GABAPENTIN
     Indication: Pain
     Dosage: 100 MG, THREE TIMES A DAY
  3. HYDROCODONE [Concomitant]
     Active Substance: HYDROCODONE
     Indication: Pain
     Dosage: 10-325 MG, UP TO FOUR TIMES A DAY
  4. CYCLOBENZAPRINE [Concomitant]
     Active Substance: CYCLOBENZAPRINE
     Indication: Pain
     Dosage: 10 MG, DAILY AS NEEDED
  5. TIZANIDINE [Concomitant]
     Active Substance: TIZANIDINE
     Indication: Pain
     Dosage: 2 MG, TWICE A DAY

REACTIONS (4)
  - Hypertension [Unknown]
  - Tachycardia [Unknown]
  - Hyperthermia [Unknown]
  - Hyperhidrosis [Unknown]
